FAERS Safety Report 18317864 (Version 1)
Quarter: 2020Q3

REPORT INFORMATION
  Report Type: Other
  Country: US (occurrence: US)
  Receive Date: 20200928
  Receipt Date: 20200928
  Transmission Date: 20201103
  Serious: Yes (Death, Life-Threatening, Other)
  Sender: FDA-Public Use
  Company Number: US-ACI HEALTHCARE LIMITED-2092207

PATIENT
  Age: 43 Year
  Sex: Male

DRUGS (5)
  1. FOLIC ACID. [Concomitant]
     Active Substance: FOLIC ACID
     Route: 048
  2. CLONIDINE. [Suspect]
     Active Substance: CLONIDINE
     Route: 065
  3. PREDNISONE. [Suspect]
     Active Substance: PREDNISONE
     Route: 065
  4. MULTIVITAMIN?IRON [Concomitant]
     Route: 048
  5. GABAPENTIN. [Suspect]
     Active Substance: GABAPENTIN
     Indication: ALCOHOL WITHDRAWAL SYNDROME
     Route: 048

REACTIONS (5)
  - Off label use [Fatal]
  - Completed suicide [Fatal]
  - Suicidal ideation [Fatal]
  - Drug interaction [Fatal]
  - Suicide attempt [Fatal]
